FAERS Safety Report 5822040-8 (Version None)
Quarter: 2008Q3

REPORT INFORMATION
  Report Type: 
  Country: None (occurrence: None)
  Receive Date: 20080718
  Receipt Date: 20080704
  Transmission Date: 20090109
  Serious: Yes (Other)
  Sender: FDA-Public Use
  Company Number: STI-2008-02397

PATIENT
  Age: 8 Year
  Sex: Male

DRUGS (1)
  1. CORTICOSTEROIDS (UNSPECIFIED) (CORTICOSTEROIDS) (CORTICOSTEROIDS) [Suspect]
     Dosage: TOPICAL
     Route: 061

REACTIONS (2)
  - CATARACT [None]
  - VISION BLURRED [None]
